FAERS Safety Report 13402668 (Version 6)
Quarter: 2018Q1

REPORT INFORMATION
  Report Type: Spontaneous
  Country: US (occurrence: US)
  Receive Date: 20170404
  Receipt Date: 20180201
  Transmission Date: 20180508
  Serious: Yes (Death, Hospitalization, Other)
  Sender: FDA-Public Use
  Company Number: US-ACTELION-A-NJ2017-151999

PATIENT
  Age: 74 Year
  Sex: Male

DRUGS (12)
  1. VALCHLOR [Suspect]
     Active Substance: MECHLORETHAMINE
     Indication: HERPES ZOSTER
     Dosage: UNK UNK, THIN FILM TO AFFECTED SKIN QD
     Route: 061
     Dates: start: 20160621
  2. AQUAPHOR [Concomitant]
     Active Substance: PETROLATUM
  3. VALCHLOR [Suspect]
     Active Substance: MECHLORETHAMINE
     Indication: MYCOSIS FUNGOIDES
  4. NORCO [Concomitant]
     Active Substance: ACETAMINOPHEN\HYDROCODONE BITARTRATE
     Dosage: 5 MG, PRN
     Route: 048
     Dates: start: 20171104
  5. KEFLEX [Concomitant]
     Active Substance: CEPHALEXIN
  6. COUMADIN [Concomitant]
     Active Substance: WARFARIN SODIUM
     Dosage: 1.5 MG, QD
     Route: 048
     Dates: start: 20171104
  7. VALTREX [Concomitant]
     Active Substance: VALACYCLOVIR HYDROCHLORIDE
     Dosage: 500 MG, BID
     Route: 048
     Dates: start: 20171104
  8. METOPROLOL. [Concomitant]
     Active Substance: METOPROLOL
     Dosage: 12.5 MG, Q12HRS
     Route: 048
     Dates: start: 20171104
  9. CALCIUM ALGINATE [Concomitant]
     Active Substance: CALCIUM ALGINATE
     Dosage: 3 TIMES A WEEK
     Dates: start: 20170918
  10. ATORVASTIN [Concomitant]
     Active Substance: ATORVASTATIN
     Dosage: 20 MG, QD
     Route: 048
     Dates: start: 20171104
  11. MAG OXIDE [Concomitant]
     Active Substance: MAGNESIUM OXIDE
     Dosage: 400 MG, BID
     Route: 048
     Dates: start: 20171104
  12. TARGRETIN [Concomitant]
     Active Substance: BEXAROTENE

REACTIONS (15)
  - Leukocytosis [Unknown]
  - Pain [Unknown]
  - Scab [Unknown]
  - Eyelid margin crusting [Not Recovered/Not Resolved]
  - Aneurysm repair [Unknown]
  - Hypotension [Unknown]
  - Death [Fatal]
  - Aneurysm [Unknown]
  - Bacterial test [Unknown]
  - Herpes zoster [Unknown]
  - Atrial fibrillation [Unknown]
  - Staphylococcal infection [Unknown]
  - Deep vein thrombosis [Unknown]
  - Tachycardia [Unknown]
  - Dry skin [Unknown]

NARRATIVE: CASE EVENT DATE: 20171114
